FAERS Safety Report 20810445 (Version 1)
Quarter: 2022Q2

REPORT INFORMATION
  Report Type: Spontaneous
  Country: US (occurrence: US)
  Receive Date: 20220510
  Receipt Date: 20220510
  Transmission Date: 20220720
  Serious: Yes (Other)
  Sender: FDA-Public Use
  Company Number: US-Fresenius Kabi-FK202205369

PATIENT
  Age: 51 Year
  Sex: Male

DRUGS (1)
  1. TRANEXAMIC ACID [Suspect]
     Active Substance: TRANEXAMIC ACID
     Indication: Product used for unknown indication
     Dosage: 3.5ML (350MG)
     Route: 037

REACTIONS (3)
  - Cardiotoxicity [Recovering/Resolving]
  - Neurotoxicity [Recovering/Resolving]
  - Product administration error [Recovering/Resolving]
